FAERS Safety Report 24293923 (Version 1)
Quarter: 2024Q3

REPORT INFORMATION
  Report Type: Spontaneous
  Country: FR (occurrence: None)
  Receive Date: 20240906
  Receipt Date: 20240906
  Transmission Date: 20241016
  Serious: Yes (Hospitalization, Other)
  Sender: ASTRAZENECA
  Company Number: 2024A202335

PATIENT
  Age: 53 Year
  Sex: Female
  Weight: 70 kg

DRUGS (6)
  1. QUETIAPINE FUMARATE [Suspect]
     Active Substance: QUETIAPINE FUMARATE
     Indication: Bipolar II disorder
     Route: 048
     Dates: end: 20240808
  2. OLANZAPINE [Suspect]
     Active Substance: OLANZAPINE
     Indication: Bipolar II disorder
     Route: 048
     Dates: end: 20240808
  3. CYAMEMAZINE [Suspect]
     Active Substance: CYAMEMAZINE
     Indication: Bipolar II disorder
     Dates: end: 20240808
  4. ZOPICLONE [Suspect]
     Active Substance: ZOPICLONE
     Indication: Bipolar II disorder
     Dosage: 5CP AT BEDTIME
     Dates: end: 20240808
  5. ESOMEPRAZOLE [Suspect]
     Active Substance: ESOMEPRAZOLE
  6. LAMICTAL [Suspect]
     Active Substance: LAMOTRIGINE

REACTIONS (7)
  - Coma [Recovered/Resolved]
  - Generalised tonic-clonic seizure [Recovering/Resolving]
  - Hypotension [Recovering/Resolving]
  - Catatonia [Not Recovered/Not Resolved]
  - Cerebral venous thrombosis [Unknown]
  - Paraparesis [Unknown]
  - Dysarthria [Unknown]

NARRATIVE: CASE EVENT DATE: 20240729
